FAERS Safety Report 5419010-0 (Version None)
Quarter: 2007Q3

REPORT INFORMATION
  Report Type: 
  Country: None (occurrence: None)
  Receive Date: 20070817
  Receipt Date: 20070808
  Transmission Date: 20080115
  Serious: Yes (Life-Threatening)
  Sender: FDA-Public Use
  Company Number: FR-PFIZER INC-2007066801

PATIENT
  Sex: Female

DRUGS (9)
  1. MEDROL [Suspect]
     Route: 048
  2. MYCOPHENOLATE MOFETIL [Suspect]
     Route: 048
  3. TACROLIMUS [Suspect]
     Route: 048
  4. METHOTREXATE [Suspect]
     Route: 048
  5. FOLIC ACID [Suspect]
  6. AZITHROMYCIN [Concomitant]
     Route: 048
  7. ALPHA-1-ANTITRYPSIN [Concomitant]
     Route: 042
  8. FLUINDIONE [Concomitant]
  9. PENTOXIFYLLINE [Concomitant]
     Route: 048

REACTIONS (1)
  - SEPTIC SHOCK [None]
